FAERS Safety Report 8461500-0 (Version None)
Quarter: 2012Q2

REPORT INFORMATION
  Report Type: 
  Country: None (occurrence: None)
  Receive Date: 20120619
  Receipt Date: 20120619
  Transmission Date: 20120825
  Serious: Yes (Other)
  Sender: FDA-Public Use
  Company Number: None

PATIENT
  Sex: Female
  Weight: 14.9687 kg

DRUGS (2)
  1. GUANFACINE [Suspect]
     Indication: NIGHTMARE
     Dosage: 1MG HS P.O
     Route: 048
     Dates: start: 20120215, end: 20120613
  2. GUANFACINE [Suspect]
     Indication: INSOMNIA
     Dosage: 1MG HS P.O
     Route: 048
     Dates: start: 20120215, end: 20120613

REACTIONS (1)
  - FORMICATION [None]
